FAERS Safety Report 9736027 (Version 9)
Quarter: 2017Q4

REPORT INFORMATION
  Report Type: Spontaneous
  Country: US (occurrence: US)
  Receive Date: 20131206
  Receipt Date: 20171109
  Transmission Date: 20180321
  Serious: Yes (Hospitalization, Disabling, Other)
  Sender: FDA-Public Use
  Company Number: US-009507513-1312USA001922

PATIENT
  Sex: Female
  Weight: 63.6 kg

DRUGS (22)
  1. FOSAMAX [Suspect]
     Active Substance: ALENDRONATE SODIUM
     Indication: OSTEOPOROSIS
  2. FOSAMAX [Suspect]
     Active Substance: ALENDRONATE SODIUM
     Indication: OSTEOPENIA
  3. CHOLECALCIFEROL [Concomitant]
     Active Substance: CHOLECALCIFEROL
     Indication: PRODUCT USED FOR UNKNOWN INDICATION
     Dosage: 2000 IU, QD
     Route: 065
     Dates: start: 2004
  4. CYANOCOBALAMIN. [Concomitant]
     Active Substance: CYANOCOBALAMIN
     Indication: PRODUCT USED FOR UNKNOWN INDICATION
     Dosage: 1.5 MG, QD
     Route: 065
     Dates: start: 2004
  5. FOSAMAX [Suspect]
     Active Substance: ALENDRONATE SODIUM
     Indication: OSTEOPOROSIS
  6. ALENDRONATE SODIUM. [Suspect]
     Active Substance: ALENDRONATE SODIUM
     Indication: OSTEOPOROSIS
  7. PHYTONADIONE. [Concomitant]
     Active Substance: PHYTONADIONE
     Indication: PRODUCT USED FOR UNKNOWN INDICATION
     Dosage: 5000 IU, QD
     Route: 065
     Dates: start: 2004
  8. FOSAMAX [Suspect]
     Active Substance: ALENDRONATE SODIUM
     Indication: OSTEOPOROSIS
  9. ALENDRONATE SODIUM. [Suspect]
     Active Substance: ALENDRONATE SODIUM
     Indication: OSTEOPOROSIS PROPHYLAXIS
     Dosage: UNK
     Route: 048
     Dates: start: 200802, end: 2010
  10. PROTONIX [Concomitant]
     Active Substance: PANTOPRAZOLE SODIUM
     Indication: GASTROOESOPHAGEAL REFLUX DISEASE
     Dosage: UNK, PRN
     Route: 065
     Dates: start: 2001
  11. MAGNESIUM (UNSPECIFIED) [Concomitant]
     Active Substance: MAGNESIUM
     Indication: PRODUCT USED FOR UNKNOWN INDICATION
     Dosage: UNK UNK, QD
     Route: 065
     Dates: start: 2004
  12. FOSAMAX [Suspect]
     Active Substance: ALENDRONATE SODIUM
     Indication: OSTEOPOROSIS
  13. FOSAMAX [Suspect]
     Active Substance: ALENDRONATE SODIUM
     Indication: OSTEOPENIA
  14. FOSAMAX [Suspect]
     Active Substance: ALENDRONATE SODIUM
     Indication: OSTEOPOROSIS
  15. FOSAMAX [Suspect]
     Active Substance: ALENDRONATE SODIUM
     Indication: OSTEOPOROSIS PROPHYLAXIS
     Dosage: 70 MG, QW
     Route: 048
  16. OMEGA-3 MARINE TRIGLYCERIDES [Concomitant]
     Active Substance: FISH OIL
     Indication: PRODUCT USED FOR UNKNOWN INDICATION
     Dosage: 1000 MG, QD
     Route: 065
     Dates: start: 2004
  17. UBIDECARENONE [Concomitant]
     Active Substance: UBIDECARENONE
     Indication: PRODUCT USED FOR UNKNOWN INDICATION
     Dosage: 1 DF, QD
     Route: 065
     Dates: start: 2004
  18. CALCIUM (UNSPECIFIED) (+) MAGNESIUM (UNSPECIFIED) [Concomitant]
     Indication: PRODUCT USED FOR UNKNOWN INDICATION
     Dosage: UNK UNK, QD
     Route: 065
     Dates: start: 2004
  19. FOSAMAX [Suspect]
     Active Substance: ALENDRONATE SODIUM
     Indication: OSTEOPOROSIS PROPHYLAXIS
     Dosage: 35 MG, QW
     Route: 048
     Dates: start: 20031015, end: 20040418
  20. FOSAMAX [Suspect]
     Active Substance: ALENDRONATE SODIUM
     Indication: OSTEOPENIA
  21. FOSAMAX [Suspect]
     Active Substance: ALENDRONATE SODIUM
     Indication: OSTEOPOROSIS PROPHYLAXIS
     Dosage: UNK
     Route: 048
     Dates: start: 2005, end: 200802
  22. FOSAMAX [Suspect]
     Active Substance: ALENDRONATE SODIUM
     Indication: OSTEOPOROSIS

REACTIONS (49)
  - Water intoxication [Unknown]
  - Overdose [Unknown]
  - Fibromyalgia [Unknown]
  - Vitamin D deficiency [Unknown]
  - Pneumonia [Unknown]
  - Haemorrhagic anaemia [Unknown]
  - Bronchitis chronic [Unknown]
  - Thrombosis [Unknown]
  - Herpes zoster [Unknown]
  - Invasive ductal breast carcinoma [Recovered/Resolved]
  - Steroid therapy [Unknown]
  - Rib fracture [Unknown]
  - Lung infiltration [Unknown]
  - Ligament sprain [Unknown]
  - Hip fracture [Not Recovered/Not Resolved]
  - Surgery [Unknown]
  - Depression [Unknown]
  - Myalgia [Unknown]
  - Periodontal operation [Unknown]
  - Arthralgia [Unknown]
  - Low turnover osteopathy [Not Recovered/Not Resolved]
  - Deep vein thrombosis [Unknown]
  - Spinal osteoarthritis [Unknown]
  - Polyarthritis [Unknown]
  - Knee arthroplasty [Unknown]
  - Osteoporosis [Not Recovered/Not Resolved]
  - Hyponatraemia [Unknown]
  - Road traffic accident [Unknown]
  - Asthma [Unknown]
  - Hip fracture [Unknown]
  - Bone scan abnormal [Unknown]
  - Ligament sprain [Unknown]
  - Limb operation [Unknown]
  - Ankle fracture [Unknown]
  - Pneumonia [Unknown]
  - Neck pain [Not Recovered/Not Resolved]
  - Anxiety [Unknown]
  - Parkinson^s disease [Unknown]
  - Bladder dysfunction [Unknown]
  - Periodontal operation [Unknown]
  - Humerus fracture [Recovered/Resolved]
  - Femur fracture [Recovered/Resolved]
  - Radiotherapy to breast [Recovered/Resolved]
  - Varicose vein [Unknown]
  - Scoliosis [Unknown]
  - Sinusitis [Unknown]
  - Atelectasis [Unknown]
  - Joint injury [Unknown]
  - Hyperlipidaemia [Unknown]

NARRATIVE: CASE EVENT DATE: 2004
